FAERS Safety Report 11439379 (Version 1)
Quarter: 2015Q3

REPORT INFORMATION
  Report Type: Spontaneous
  Country: US (occurrence: US)
  Receive Date: 20150901
  Receipt Date: 20150901
  Transmission Date: 20151125
  Serious: No
  Sender: FDA-Public Use
  Company Number: US-ROCHE-1089145

PATIENT
  Sex: Female

DRUGS (2)
  1. PEGASYS [Suspect]
     Active Substance: PEGINTERFERON ALFA-2A
     Indication: CHRONIC HEPATITIS C
     Route: 058
     Dates: start: 20090304, end: 20090812
  2. RIBAVIRIN. [Suspect]
     Active Substance: RIBAVIRIN
     Indication: CHRONIC HEPATITIS C
     Route: 048
     Dates: start: 20090304, end: 20090812

REACTIONS (9)
  - Temperature intolerance [Unknown]
  - Hypotension [Unknown]
  - Injection site rash [Unknown]
  - Disorientation [Unknown]
  - Syncope [Unknown]
  - Alopecia [Unknown]
  - Piloerection [Unknown]
  - Tremor [Unknown]
  - Nausea [Unknown]
